FAERS Safety Report 6287613-X (Version None)
Quarter: 2009Q3

REPORT INFORMATION
  Report Type: 
  Country: None (occurrence: None)
  Receive Date: 20090727
  Receipt Date: 20090727
  Transmission Date: 20100115
  Serious: No
  Sender: FDA-Public Use
  Company Number: None

PATIENT
  Age: 70 Year
  Sex: Male
  Weight: 122.4712 kg

DRUGS (1)
  1. CEFPROZIL [Suspect]
     Indication: TOOTH INFECTION
     Dosage: 1 TABLET EVERY 12 HRS
     Dates: start: 20090703, end: 20090704

REACTIONS (1)
  - PENILE EXFOLIATION [None]
